FAERS Safety Report 21247908 (Version 7)
Quarter: 2023Q1

REPORT INFORMATION
  Report Type: Spontaneous
  Country: IN (occurrence: IN)
  Receive Date: 20220824
  Receipt Date: 20230306
  Transmission Date: 20230418
  Serious: Yes (Other)
  Sender: FDA-Public Use
  Company Number: IN-PFIZER INC-202101605929

PATIENT
  Age: 55 Year
  Sex: Female

DRUGS (8)
  1. DACOMITINIB [Suspect]
     Active Substance: DACOMITINIB
     Indication: Lung neoplasm malignant
     Dosage: 30 MG, 1X/DAY
     Route: 048
     Dates: start: 202111
  2. DOXYCYCLINE [Concomitant]
     Active Substance: DOXYCYCLINE
     Dosage: 100 MG, 1X/DAY
  3. HYDROCORTISONE [Concomitant]
     Active Substance: HYDROCORTISONE
     Indication: Rash
     Dosage: UNK
  4. LOPERAMIDE HYDROCHLORIDE [Concomitant]
     Active Substance: LOPERAMIDE HYDROCHLORIDE
     Indication: Diarrhoea
     Dosage: 1 DF, AS NEEDED
  5. RANITIDINE HYDROCHLORIDE [Concomitant]
     Active Substance: RANITIDINE HYDROCHLORIDE
     Dosage: 150 MG
  6. MEGEETRON [Concomitant]
     Dosage: 160 MG, 2X/DAY
  7. CALCIUM\CHOLECALCIFEROL [Concomitant]
     Active Substance: CALCIUM\CHOLECALCIFEROL
     Dosage: 1 DF, 1X/DAY
  8. ULTRACET [Concomitant]
     Active Substance: ACETAMINOPHEN\TRAMADOL HYDROCHLORIDE
     Indication: Pain
     Dosage: 1 DF, 3X/DAY

REACTIONS (19)
  - Carcinoembryonic antigen increased [Unknown]
  - Pulmonary fibrosis [Unknown]
  - Alanine aminotransferase increased [Unknown]
  - Neoplasm progression [Unknown]
  - Dermatitis allergic [Unknown]
  - Rash [Unknown]
  - Paronychia [Unknown]
  - Blood pressure increased [Unknown]
  - C-reactive protein increased [Unknown]
  - Blood alkaline phosphatase decreased [Unknown]
  - Weight decreased [Unknown]
  - Headache [Unknown]
  - Haemangioma [Unknown]
  - Osteosclerosis [Unknown]
  - Spinal osteoarthritis [Unknown]
  - Investigation abnormal [Unknown]
  - Cough [Unknown]
  - Palmar-plantar erythrodysaesthesia syndrome [Unknown]
  - Weight increased [Unknown]

NARRATIVE: CASE EVENT DATE: 20211203
